FAERS Safety Report 8154420-2 (Version None)
Quarter: 2012Q1

REPORT INFORMATION
  Report Type: 
  Country: None (occurrence: None)
  Receive Date: 20120103
  Receipt Date: 20110908
  Transmission Date: 20120608
  Serious: No
  Sender: FDA-Public Use
  Company Number: AE-2011-000962

PATIENT
  Age: 51 Year
  Sex: Female
  Weight: 65.7716 kg

DRUGS (3)
  1. PEGASYS [Concomitant]
  2. INCIVEK [Suspect]
     Dosage: (750 MG, 750 MG EVERY 7-9 HOURS)
     Dates: start: 20110803
  3. RIBAPAK (RIBAVIRIN) [Concomitant]

REACTIONS (2)
  - RASH [None]
  - PRURITUS [None]
